FAERS Safety Report 8593907-5 (Version None)
Quarter: 2012Q3

REPORT INFORMATION
  Report Type: 
  Country: None (occurrence: None)
  Receive Date: 20120814
  Receipt Date: 20120809
  Transmission Date: 20120928
  Serious: Yes (Life-Threatening, Hospitalization, Other)
  Sender: FDA-Public Use
  Company Number: US-CELGENEUS-163-21880-12064032

PATIENT
  Sex: Female

DRUGS (14)
  1. MULTI-VITAMINS [Concomitant]
     Route: 065
  2. FERREX [Concomitant]
     Route: 065
  3. METAMUCIL-2 [Concomitant]
     Route: 065
  4. ATENOLOL [Concomitant]
     Route: 065
  5. FISH OIL [Concomitant]
     Route: 065
  6. ASPIRIN [Concomitant]
     Indication: MITRAL VALVE PROLAPSE
     Dosage: 81 MILLIGRAM
     Route: 065
  7. DIAMOX [Concomitant]
     Dosage: 250 MILLIGRAM
     Route: 048
  8. PROBIOTIC [Concomitant]
     Route: 065
  9. VITAMIN D [Concomitant]
     Route: 065
  10. TYLENOL [Concomitant]
     Route: 065
  11. ZOLOFT [Concomitant]
     Dosage: 50 MILLIGRAM
     Route: 048
  12. VITAMIN B-12 [Concomitant]
     Route: 065
     Dates: end: 20120715
  13. POTASSIUM [Concomitant]
     Dosage: 8 MILLIEQUIVALENTS
     Route: 065
  14. REVLIMID [Suspect]
     Indication: MYELODYSPLASTIC SYNDROME
     Dosage: 10 MILLIGRAM
     Route: 048
     Dates: start: 20120608, end: 20120619

REACTIONS (1)
  - SUPERIOR SAGITTAL SINUS THROMBOSIS [None]
